FAERS Safety Report 20088265 (Version 1)
Quarter: 2021Q4

REPORT INFORMATION
  Report Type: Spontaneous
  Country: FR (occurrence: FR)
  Receive Date: 20211118
  Receipt Date: 20211118
  Transmission Date: 20220303
  Serious: Yes (Hospitalization, Congenital Anomaly, Other)
  Sender: FDA-Public Use
  Company Number: FR-ABBVIE-21K-056-4165991-00

PATIENT
  Sex: Female

DRUGS (2)
  1. VALPROATE SODIUM [Suspect]
     Active Substance: VALPROATE SODIUM
     Indication: Maternal exposure timing unspecified
     Route: 064
  2. ALEPSAL [Concomitant]
     Indication: Maternal exposure timing unspecified
     Route: 064

REACTIONS (26)
  - Osteoarthritis [Unknown]
  - Restless legs syndrome [Unknown]
  - Muscle spasms [Unknown]
  - Pain in extremity [Unknown]
  - Pain [Unknown]
  - Oedema [Unknown]
  - Joint stiffness [Unknown]
  - Ligament sprain [Unknown]
  - Paraesthesia [Unknown]
  - Synostosis [Unknown]
  - Dysmorphism [Unknown]
  - Reading disorder [Unknown]
  - Speech disorder developmental [Unknown]
  - Speech disorder developmental [Unknown]
  - Educational problem [Unknown]
  - Abnormal behaviour [Unknown]
  - Personality change [Unknown]
  - Catastrophic reaction [Unknown]
  - Talipes [Unknown]
  - Congenital flat feet [Unknown]
  - Disturbance in attention [Unknown]
  - Developmental delay [Unknown]
  - Joint space narrowing [Unknown]
  - Limb malformation [Unknown]
  - Learning disorder [Unknown]
  - Foetal exposure during pregnancy [Unknown]

NARRATIVE: CASE EVENT DATE: 19990501
